FAERS Safety Report 8806519 (Version 2)
Quarter: 2013Q1

REPORT INFORMATION
  Report Type: Spontaneous
  Country: US (occurrence: US)
  Receive Date: 20120925
  Receipt Date: 20130114
  Transmission Date: 20140127
  Serious: Yes (Hospitalization)
  Sender: FDA-Public Use
  Company Number: US-BAYER-2012-097575

PATIENT
  Age: 41 Year
  Sex: Female
  Weight: 65.76 kg

DRUGS (12)
  1. YASMIN [Suspect]
     Indication: PREMENSTRUAL DYSPHORIC DISORDER
     Dosage: UNK
     Dates: start: 200212, end: 200303
  2. YASMIN [Suspect]
     Indication: PREMENSTRUAL SYNDROME
  3. VIOXX [Concomitant]
     Dosage: 25 MG, QD
  4. NABUMETONE [Concomitant]
     Dosage: 500 MG, QD
  5. ACIPHEX [Concomitant]
     Dosage: 20 MG, QD
  6. BUSPAR [Concomitant]
     Dosage: 15 MG, QD
  7. LEXAPRO [Concomitant]
     Dosage: 20 MG, QD
  8. TRAZODONE HCL [Concomitant]
     Dosage: 50 MG, QD
  9. IMITREX [Concomitant]
     Dosage: UNK UNK, QD
  10. ESTRADIOL [Concomitant]
     Dosage: 0.5 MG, QD
  11. DIFFERIN [Concomitant]
  12. VICODIN [Concomitant]
     Dosage: UNK UNK, PRN

REACTIONS (9)
  - Pulmonary embolism [None]
  - Pain [None]
  - Injury [None]
  - General physical health deterioration [None]
  - Anxiety [None]
  - Emotional distress [None]
  - Pain [None]
  - Mental disorder [None]
  - Off label use [None]
